FAERS Safety Report 4828754-0 (Version None)
Quarter: 2005Q4

REPORT INFORMATION
  Report Type: 
  Country: None (occurrence: None)
  Receive Date: 20051014
  Receipt Date: 20050829
  Transmission Date: 20060501
  Serious: No
  Sender: FDA-Public Use
  Company Number: 2005SP002549

PATIENT
  Age: 62 Year
  Sex: Male
  Weight: 83.9154 kg

DRUGS (5)
  1. LUNESTA [Suspect]
     Indication: INSOMNIA
     Dosage: 3 MG;HS;ORAL
     Route: 048
     Dates: start: 20050823, end: 20050824
  2. TRAVATAN [Concomitant]
  3. ACIPHEX [Concomitant]
  4. ZANTAC [Concomitant]
  5. TRUSOPT [Concomitant]

REACTIONS (3)
  - ABNORMAL DREAMS [None]
  - HEART RATE INCREASED [None]
  - PARADOXICAL DRUG REACTION [None]
